FAERS Safety Report 4877445-9 (Version None)
Quarter: 2006Q1

REPORT INFORMATION
  Report Type: 
  Country: None (occurrence: None)
  Receive Date: 20060111
  Receipt Date: 20060103
  Transmission Date: 20060701
  Serious: Yes (Other)
  Sender: FDA-Public Use
  Company Number: 2006UW00186

PATIENT
  Age: 58 Year
  Sex: Female

DRUGS (13)
  1. IRESSA [Suspect]
     Route: 048
     Dates: start: 20031208, end: 20031221
  2. CELEBREX [Suspect]
     Dates: start: 20031208, end: 20031221
  3. CALCIUM GLUCONATE [Concomitant]
  4. ATACAND [Concomitant]
  5. DECADRON [Concomitant]
  6. MULTIVITAMIN [Concomitant]
  7. FOLIC ACID [Concomitant]
  8. PROCRIT [Concomitant]
  9. FERROUS SULFATE TAB [Concomitant]
  10. TOPROL-XL [Concomitant]
  11. ACETAMINOPHEN [Concomitant]
  12. ZANTAC [Concomitant]
  13. ACIPHEX [Concomitant]

REACTIONS (3)
  - ARRHYTHMIA [None]
  - ASTHENIA [None]
  - PULMONARY EMBOLISM [None]
